FAERS Safety Report 7814776-4 (Version None)
Quarter: 2011Q4

REPORT INFORMATION
  Report Type: 
  Country: None (occurrence: None)
  Receive Date: 20111013
  Receipt Date: 20111013
  Transmission Date: 20120403
  Serious: Yes (Life-Threatening, Hospitalization, Other)
  Sender: FDA-Public Use
  Company Number: None

PATIENT
  Sex: Female
  Weight: 63.6 kg

DRUGS (2)
  1. CARAFATE [Suspect]
     Indication: GASTROOESOPHAGEAL REFLUX DISEASE
     Dosage: 1 GM X4 DAILY
     Dates: start: 20100101
  2. CARAFATE [Suspect]
     Indication: GASTRITIS
     Dosage: 1 GM X4 DAILY
     Dates: start: 20100101

REACTIONS (8)
  - ASTHMA [None]
  - CHOKING [None]
  - DYSPNOEA [None]
  - PRODUCT QUALITY ISSUE [None]
  - FOREIGN BODY [None]
  - BRONCHOSPASM [None]
  - DYSPHAGIA [None]
  - FEAR [None]
